FAERS Safety Report 19428321 (Version 2)
Quarter: 2021Q4

REPORT INFORMATION
  Report Type: Spontaneous
  Country: US (occurrence: US)
  Receive Date: 20210616
  Receipt Date: 20211209
  Transmission Date: 20220303
  Serious: No
  Sender: FDA-Public Use
  Company Number: US-AMGEN-USASP2021091607

PATIENT
  Age: 74 Year
  Sex: Female

DRUGS (1)
  1. PROLIA [Suspect]
     Active Substance: DENOSUMAB
     Indication: Osteoporosis postmenopausal
     Dosage: UNK
     Route: 065

REACTIONS (7)
  - Thyroid disorder [Unknown]
  - Abdominal rigidity [Unknown]
  - Hypoaesthesia oral [Unknown]
  - Paraesthesia oral [Unknown]
  - Headache [Unknown]
  - Bone pain [Unknown]
  - Tooth extraction [Unknown]

NARRATIVE: CASE EVENT DATE: 20190101
